FAERS Safety Report 9627291 (Version 1)
Quarter: 2013Q4

REPORT INFORMATION
  Report Type: Not Available
  Country: US (occurrence: US)
  Receive Date: 20131016
  Receipt Date: 20131016
  Transmission Date: 20140711
  Serious: Yes (Other)
  Sender: FDA-Public Use
  Company Number: US-LUNDBECK-DKLU1085243

PATIENT
  Sex: Male

DRUGS (4)
  1. SABRIL (TABLET) [Suspect]
     Indication: TUBEROUS SCLEROSIS
     Dates: start: 20120514
  2. SABRIL (TABLET) [Suspect]
     Indication: INFANTILE SPASMS
  3. SABRIL (TABLET) [Suspect]
     Indication: COMPLEX PARTIAL SEIZURES
  4. KEPPRA [Concomitant]
     Indication: PRODUCT USED FOR UNKNOWN INDICATION

REACTIONS (1)
  - Complex partial seizures [Unknown]
